FAERS Safety Report 8108145-X (Version None)
Quarter: 2011Q4

REPORT INFORMATION
  Report Type: 
  Country: None (occurrence: None)
  Receive Date: 20111227
  Receipt Date: 20111031
  Transmission Date: 20120403
  Serious: Yes (Disabling)
  Sender: FDA-Public Use
  Company Number: PHEH2011US06133

PATIENT
  Age: 55 Year
  Sex: Female
  Weight: 65 kg

DRUGS (3)
  1. PRISTIQ [Concomitant]
  2. GILENYA [Suspect]
     Indication: MULTIPLE SCLEROSIS
     Dosage: ORAL
     Route: 048
     Dates: start: 20110701
  3. SOLU-MEDROL [Concomitant]

REACTIONS (1)
  - DEPRESSION [None]
